FAERS Safety Report 13870278 (Version 1)
Quarter: 2017Q3

REPORT INFORMATION
  Report Type: Spontaneous
  Country: US (occurrence: US)
  Receive Date: 20170815
  Receipt Date: 20170815
  Transmission Date: 20171127
  Serious: Yes (Other)
  Sender: FDA-Public Use
  Company Number: US-009507513-1708USA006290

PATIENT
  Sex: Female

DRUGS (2)
  1. PRINIVIL [Suspect]
     Active Substance: LISINOPRIL
     Indication: HYPERTENSION
     Dosage: 20 MG, ONCE A DAY
     Route: 048
     Dates: start: 201611
  2. OXCARBAZEPINE. [Concomitant]
     Active Substance: OXCARBAZEPINE

REACTIONS (1)
  - Deafness [Not Recovered/Not Resolved]
